FAERS Safety Report 24304735 (Version 1)
Quarter: 2024Q3

REPORT INFORMATION
  Report Type: Report from Study
  Country: MY (occurrence: MY)
  Receive Date: 20240910
  Receipt Date: 20240910
  Transmission Date: 20241016
  Serious: Yes (Death, Other)
  Sender: TAKEDA
  Company Number: MY-TAKEDA-2023TUS043961

PATIENT
  Age: 66 Year
  Sex: Male

DRUGS (1)
  1. IXAZOMIB [Suspect]
     Active Substance: IXAZOMIB
     Indication: Plasma cell myeloma
     Dosage: 4 MILLIGRAM
     Route: 048
     Dates: start: 20230425, end: 20230502

REACTIONS (4)
  - Death [Fatal]
  - Plasma cell myeloma [Unknown]
  - Mobility decreased [Unknown]
  - Asthenia [Unknown]

NARRATIVE: CASE EVENT DATE: 20230425
